APPROVED DRUG PRODUCT: PREGABALIN
Active Ingredient: PREGABALIN
Strength: 25MG
Dosage Form/Route: CAPSULE;ORAL
Application: A206752 | Product #001
Applicant: ZYDUS PHARMACEUTICALS USA INC
Approved: Dec 9, 2022 | RLD: No | RS: No | Type: DISCN